FAERS Safety Report 4976196-X (Version None)
Quarter: 2006Q2

REPORT INFORMATION
  Report Type: 
  Country: None (occurrence: None)
  Receive Date: 20060419
  Receipt Date: 20060411
  Transmission Date: 20061013
  Serious: Yes (Other)
  Sender: FDA-Public Use
  Company Number: US-JNJFOC-20060402577

PATIENT
  Age: 50 Year
  Sex: Male
  Weight: 99.79 kg

DRUGS (12)
  1. REMICADE [Suspect]
     Route: 042
  2. REMICADE [Suspect]
     Indication: CROHN'S DISEASE
     Route: 042
  3. LEVAQUIN [Concomitant]
  4. CITALOPRAM [Concomitant]
     Indication: DEPRESSION
  5. FOLIC ACID [Concomitant]
  6. IMODIUM [Concomitant]
     Dosage: 3-4/DAY PRN
  7. EXCEDRIN [Concomitant]
  8. EXCEDRIN [Concomitant]
  9. EXCEDRIN [Concomitant]
  10. EXCEDRIN [Concomitant]
     Indication: HEADACHE
  11. IBUPROFEN [Concomitant]
     Indication: HEADACHE
  12. PENTASA [Concomitant]
     Indication: CROHN'S DISEASE

REACTIONS (4)
  - EXOSTOSIS [None]
  - INFLUENZA [None]
  - NASAL SEPTUM DEVIATION [None]
  - SINUSITIS [None]
